FAERS Safety Report 18145117 (Version 1)
Quarter: 2020Q3

REPORT INFORMATION
  Report Type: Spontaneous
  Country: US (occurrence: US)
  Receive Date: 20200813
  Receipt Date: 20200813
  Transmission Date: 20201103
  Serious: No
  Sender: FDA-Public Use
  Company Number: US-PFIZER INC-2020310779

PATIENT
  Age: 54 Year
  Sex: Female

DRUGS (2)
  1. ERYTHROMYCIN. [Suspect]
     Active Substance: ERYTHROMYCIN
     Dosage: UNK
  2. OCREVUS [Concomitant]
     Active Substance: OCRELIZUMAB
     Dosage: UNK

REACTIONS (1)
  - Drug hypersensitivity [Unknown]
